FAERS Safety Report 13524101 (Version 1)
Quarter: 2017Q2

REPORT INFORMATION
  Report Type: Spontaneous
  Country: DK (occurrence: DK)
  Receive Date: 20170508
  Receipt Date: 20170508
  Transmission Date: 20170830
  Serious: Yes (Other)
  Sender: FDA-Public Use
  Company Number: DK-TEVA-764778ACC

PATIENT
  Age: 91 Year
  Sex: Female
  Weight: 67 kg

DRUGS (4)
  1. MIRTAZAPIN ^ACTAVIS^ [Suspect]
     Active Substance: MIRTAZAPINE
     Indication: INSOMNIA
     Dosage: 15 MILLIGRAM DAILY;
     Route: 048
     Dates: start: 20111216, end: 20160918
  2. LOSARTAN ^AUROBINDO^ [Concomitant]
     Indication: HYPERTENSION
  3. PLENDIL [Concomitant]
     Active Substance: FELODIPINE
     Indication: HYPERTENSION
  4. MAGNYL ^DAK^ [Concomitant]
     Indication: HYPERTENSION

REACTIONS (13)
  - Nightmare [Recovering/Resolving]
  - Muscle spasms [Recovering/Resolving]
  - Confusional state [Recovering/Resolving]
  - Erythropoiesis abnormal [Recovering/Resolving]
  - Myalgia [Recovering/Resolving]
  - Hallucination [Recovering/Resolving]
  - Anxiety [Recovering/Resolving]
  - Tinnitus [Recovered/Resolved]
  - Dizziness [Recovering/Resolving]
  - Insomnia [Recovering/Resolving]
  - Arthralgia [Recovering/Resolving]
  - Headache [Recovering/Resolving]
  - Dry mouth [Recovering/Resolving]

NARRATIVE: CASE EVENT DATE: 2015
